FAERS Safety Report 7370809-3 (Version None)
Quarter: 2011Q1

REPORT INFORMATION
  Report Type: 
  Country: None (occurrence: None)
  Receive Date: 20110324
  Receipt Date: 20110315
  Transmission Date: 20110831
  Serious: Yes (Hospitalization)
  Sender: FDA-Public Use
  Company Number: US-BIOGENIDEC-2011BI007361

PATIENT
  Age: 62 Year
  Sex: Female
  Weight: 74 kg

DRUGS (4)
  1. AVONEX [Suspect]
     Indication: MULTIPLE SCLEROSIS
     Route: 030
     Dates: start: 20040420
  2. TRICOR [Concomitant]
     Indication: DYSLIPIDAEMIA
  3. LESCOL [Concomitant]
     Indication: DYSLIPIDAEMIA
  4. FISH OIL [Concomitant]
     Indication: DYSLIPIDAEMIA

REACTIONS (11)
  - MYOCARDIAL INFARCTION [None]
  - MULTIPLE SCLEROSIS RELAPSE [None]
  - PANIC ATTACK [None]
  - GAIT DISTURBANCE [None]
  - INJECTION SITE HAEMATOMA [None]
  - TRANSIENT ISCHAEMIC ATTACK [None]
  - DEPRESSION [None]
  - CORONARY ARTERY OCCLUSION [None]
  - AMNESIA [None]
  - INJECTION SITE HAEMORRHAGE [None]
  - INJECTION SITE PAIN [None]
